FAERS Safety Report 8133331-2 (Version None)
Quarter: 2012Q1

REPORT INFORMATION
  Report Type: 
  Country: None (occurrence: None)
  Receive Date: 20120213
  Receipt Date: 20120209
  Transmission Date: 20120608
  Serious: Yes (Disabling)
  Sender: FDA-Public Use
  Company Number: US-TEVA-318437USA

PATIENT
  Sex: Male

DRUGS (1)
  1. CLARAVIS [Suspect]
     Route: 048
     Dates: start: 20111201, end: 20111201

REACTIONS (3)
  - IMMOBILE [None]
  - BACK PAIN [None]
  - ARTHRALGIA [None]
